FAERS Safety Report 9851341 (Version 1)
Quarter: 2014Q1

REPORT INFORMATION
  Report Type: Report from Study
  Country: GB (occurrence: GB)
  Receive Date: 20140129
  Receipt Date: 20140129
  Transmission Date: 20141002
  Serious: Yes (Hospitalization)
  Sender: FDA-Public Use
  Company Number: GB-ROCHE-1340817

PATIENT
  Age: 68 Year
  Sex: Female

DRUGS (11)
  1. RANIBIZUMAB [Suspect]
     Indication: AGE-RELATED MACULAR DEGENERATION
     Dosage: RECENT DOSE ON 06/NOV/2013
     Route: 050
  2. ATENOLOL [Concomitant]
     Route: 065
     Dates: start: 200205
  3. ATENOLOL [Concomitant]
     Route: 065
     Dates: start: 20140106
  4. FUROSEMIDE [Concomitant]
     Route: 065
     Dates: start: 200406
  5. FUROSEMIDE [Concomitant]
     Route: 065
     Dates: start: 20140106
  6. ATORVASTATIN [Concomitant]
     Route: 065
     Dates: start: 200406
  7. ATORVASTATIN [Concomitant]
     Route: 065
     Dates: start: 20140106
  8. ASPIRIN [Concomitant]
     Route: 065
     Dates: start: 201007
  9. ASPIRIN [Concomitant]
     Route: 065
     Dates: start: 20140106
  10. ENALAPRIL [Concomitant]
     Route: 065
     Dates: start: 201102
  11. ENALAPRIL [Concomitant]
     Route: 065
     Dates: start: 20140106

REACTIONS (1)
  - Chest pain [Recovered/Resolved]
